FAERS Safety Report 20870067 (Version 6)
Quarter: 2024Q1

REPORT INFORMATION
  Report Type: Report from Study
  Country: FR (occurrence: FR)
  Receive Date: 20220525
  Receipt Date: 20240222
  Transmission Date: 20240409
  Serious: Yes (Hospitalization, Other)
  Sender: FDA-Public Use
  Company Number: FR-ABBVIE-22K-056-4402438-00

PATIENT
  Age: 60 Year
  Sex: Male
  Weight: 93 kg

DRUGS (9)
  1. ADALIMUMAB [Suspect]
     Active Substance: ADALIMUMAB\ISOPROPYL ALCOHOL
     Indication: Colitis ulcerative
     Dosage: TIME INTERVAL: TOTAL
     Route: 058
     Dates: start: 20170421, end: 20170421
  2. ADALIMUMAB [Suspect]
     Active Substance: ADALIMUMAB\ISOPROPYL ALCOHOL
     Dosage: TIME INTERVAL: 1 TOTAL: DAY 14
     Route: 058
     Dates: start: 20170505, end: 20170505
  3. ADALIMUMAB [Suspect]
     Active Substance: ADALIMUMAB\ISOPROPYL ALCOHOL
     Route: 058
     Dates: end: 20190315
  4. BISOPROLOL [Concomitant]
     Active Substance: BISOPROLOL\BISOPROLOL FUMARATE
     Indication: Tachycardia
     Route: 048
     Dates: start: 20170403
  5. ELIQUIS [Concomitant]
     Active Substance: APIXABAN
     Indication: Tachycardia
     Route: 048
     Dates: start: 20170403, end: 20180405
  6. ELIQUIS [Concomitant]
     Active Substance: APIXABAN
     Indication: Tachycardia
     Route: 048
     Dates: start: 20190115
  7. CORDARONE [Concomitant]
     Active Substance: AMIODARONE HYDROCHLORIDE
     Indication: Arrhythmia
     Route: 048
     Dates: start: 20170403, end: 20180405
  8. RAMIPRIL [Concomitant]
     Active Substance: RAMIPRIL
     Indication: Cardiac failure
     Route: 048
     Dates: start: 20190115
  9. FUROSEMIDE [Concomitant]
     Active Substance: FUROSEMIDE
     Indication: Cardiac failure
     Route: 048
     Dates: start: 20190115

REACTIONS (4)
  - Atrial fibrillation [Recovered/Resolved]
  - Osteoarthritis [Recovering/Resolving]
  - Lumbar spinal stenosis [Recovering/Resolving]
  - Knee arthroplasty [Recovered/Resolved]

NARRATIVE: CASE EVENT DATE: 20170831
